FAERS Safety Report 9213724 (Version 1)
Quarter: 2013Q2

REPORT INFORMATION
  Report Type: Report from Study
  Country: BR (occurrence: BR)
  Receive Date: 20130405
  Receipt Date: 20130405
  Transmission Date: 20140414
  Serious: Yes (Hospitalization)
  Sender: FDA-Public Use
  Company Number: BR-ABBOTT-10P-020-0663752-00

PATIENT
  Age: 23 Year
  Sex: Female
  Weight: 57 kg

DRUGS (9)
  1. HUMIRA 40 MG/ 0.8 ML PRE-FILLED SYRINGE [Suspect]
     Indication: TAKAYASU^S ARTERITIS
     Route: 058
  2. HUMIRA 40 MG/ 0.8 ML PRE-FILLED SYRINGE [Suspect]
     Route: 058
  3. HUMIRA 40 MG/ 0.8 ML PRE-FILLED SYRINGE [Suspect]
     Dates: start: 20130220
  4. PREDNISONE [Concomitant]
     Indication: TAKAYASU^S ARTERITIS
     Route: 048
     Dates: start: 2005
  5. METHOTREXATE [Concomitant]
     Indication: ARTERITIS
     Dosage: 6 TABLETS ON WEDNESDAY AND 4 TABLETS ON THURSDAYS
     Route: 048
     Dates: start: 2005
  6. OMEPRAZOLE [Concomitant]
     Indication: ABDOMINAL PAIN UPPER
     Route: 048
     Dates: start: 2005
  7. ASPIRIN [Concomitant]
     Indication: ANTICOAGULANT THERAPY
     Route: 048
  8. MIOSAN [Concomitant]
     Indication: MYALGIA
     Route: 048
     Dates: start: 2008
  9. FOLIC ACID [Concomitant]
     Indication: PRODUCT USED FOR UNKNOWN INDICATION
     Route: 048
     Dates: start: 2005

REACTIONS (4)
  - Rheumatoid arthritis [Recovering/Resolving]
  - Rheumatoid arthritis [Recovering/Resolving]
  - Drug ineffective [Unknown]
  - Off label use [Unknown]
